FAERS Safety Report 21934572 (Version 1)
Quarter: 2023Q1

REPORT INFORMATION
  Report Type: Spontaneous
  Country: NL (occurrence: NL)
  Receive Date: 20230201
  Receipt Date: 20230201
  Transmission Date: 20230417
  Serious: Yes (Other)
  Sender: FDA-Public Use
  Company Number: None

PATIENT
  Sex: Male
  Weight: 91 kg

DRUGS (2)
  1. METHOTREXATE [Suspect]
     Active Substance: METHOTREXATE
     Indication: Rheumatic disorder
     Dosage: STRENGTH: 2.5MG, 1 X PER WEEK 10 - REDUCED TO 4
     Dates: start: 20160201, end: 20220216
  2. ETANERCEPT [Concomitant]
     Active Substance: ETANERCEPT
     Dosage: STRENGTH: 50 MG/ML

REACTIONS (1)
  - Polyneuropathy [Not Recovered/Not Resolved]
